FAERS Safety Report 4742590-5 (Version None)
Quarter: 2005Q3

REPORT INFORMATION
  Report Type: 
  Country: None (occurrence: None)
  Receive Date: 20050811
  Receipt Date: 20050510
  Transmission Date: 20060218
  Serious: Yes (Death, Hospitalization)
  Sender: FDA-Public Use
  Company Number: UG-GILEAD-2005-0008330

PATIENT
  Sex: Female
  Weight: 83.5 kg

DRUGS (7)
  1. TENOFOVIR DISOPROXIL FUMARATE [Suspect]
     Indication: HIV INFECTION
     Route: 048
     Dates: start: 20040521, end: 20041208
  2. TENOFOVIR DISOPROXIL FUMARATE [Suspect]
     Route: 048
     Dates: start: 20030904, end: 20040513
  3. LAMIVUDINE [Suspect]
     Indication: HIV INFECTION
     Dates: start: 20040521, end: 20041208
  4. STAVUDINE [Suspect]
     Indication: HIV INFECTION
     Dates: start: 20040521, end: 20041208
  5. AMITRIPTYLINE [Concomitant]
     Dates: end: 20041208
  6. VITAMIN B COMPLEX CAP [Concomitant]
     Dates: end: 20041208
  7. DICLOFENAC SODIUM [Concomitant]
     Dates: end: 20041208

REACTIONS (6)
  - ANAEMIA [None]
  - GENERAL PHYSICAL HEALTH DETERIORATION [None]
  - LACTIC ACIDOSIS [None]
  - MITOCHONDRIAL TOXICITY [None]
  - NAUSEA [None]
  - VOMITING [None]
